FAERS Safety Report 4911910-0 (Version None)
Quarter: 2006Q1

REPORT INFORMATION
  Report Type: 
  Country: None (occurrence: None)
  Receive Date: 20060215
  Receipt Date: 20060210
  Transmission Date: 20060701
  Serious: Yes (Other)
  Sender: FDA-Public Use
  Company Number: US-BRISTOL-MYERS SQUIBB COMPANY-13279773

PATIENT
  Age: 46 Year
  Sex: Male
  Weight: 77 kg

DRUGS (3)
  1. IFEX [Suspect]
     Indication: LYMPHOMA
     Route: 042
     Dates: start: 20060209, end: 20060209
  2. DECADRON SRC [Concomitant]
     Indication: PREMEDICATION
  3. KYTRIL [Concomitant]
     Indication: PREMEDICATION

REACTIONS (3)
  - CONFUSIONAL STATE [None]
  - ENCEPHALOPATHY [None]
  - HEAD INJURY [None]
